FAERS Safety Report 21826305 (Version 2)
Quarter: 2024Q2

REPORT INFORMATION
  Report Type: Report from Study
  Country: US (occurrence: US)
  Receive Date: 20230106
  Receipt Date: 20240606
  Transmission Date: 20240716
  Serious: Yes (Hospitalization)
  Sender: FDA-Public Use
  Company Number: US-ABBVIE-22K-163-4431283-00

PATIENT
  Sex: Male

DRUGS (1)
  1. HUMIRA [Suspect]
     Active Substance: ADALIMUMAB
     Indication: Crohn^s disease
     Dosage: 40MG?CITRATE FREE
     Route: 058
     Dates: start: 20210421, end: 20221130

REACTIONS (3)
  - Crohn^s disease [Unknown]
  - Defaecation urgency [Not Recovered/Not Resolved]
  - Drug ineffective [Unknown]
